FAERS Safety Report 21711751 (Version 1)
Quarter: 2022Q4

REPORT INFORMATION
  Report Type: Spontaneous
  Country: None (occurrence: RO)
  Receive Date: 20221212
  Receipt Date: 20221212
  Transmission Date: 20230113
  Serious: Yes (Other)
  Sender: FDA-Public Use
  Company Number: RO-Therakind Limited-2135758

PATIENT
  Age: 71 Year
  Sex: Female

DRUGS (2)
  1. METHOTREXATE [Suspect]
     Active Substance: METHOTREXATE
     Indication: Product used for unknown indication
  2. LEFLUNOMIDE [Concomitant]
     Active Substance: LEFLUNOMIDE

REACTIONS (14)
  - Dry skin [Unknown]
  - C-reactive protein increased [Unknown]
  - Feeding disorder [Unknown]
  - Product dose omission in error [Unknown]
  - Erythema [Unknown]
  - Bundle branch block right [Unknown]
  - Dermatitis allergic [Unknown]
  - COVID-19 [Unknown]
  - Rheumatoid factor increased [Unknown]
  - Blood triglycerides increased [Unknown]
  - Drug ineffective [Unknown]
  - Anaphylactic shock [Unknown]
  - Drug hypersensitivity [Unknown]
  - Blood cholesterol increased [Unknown]
